FAERS Safety Report 21528486 (Version 11)
Quarter: 2024Q3

REPORT INFORMATION
  Report Type: Spontaneous
  Country: US (occurrence: US)
  Receive Date: 20221031
  Receipt Date: 20240801
  Transmission Date: 20241016
  Serious: Yes (Hospitalization, Other)
  Sender: GLAXOSMITHKLINE
  Company Number: US-GLAXOSMITHKLINE-US2021AMR260588

PATIENT

DRUGS (9)
  1. ZEJULA [Suspect]
     Active Substance: NIRAPARIB
     Indication: Ovarian cancer
     Dosage: 300 MG, QD
     Dates: start: 202112
  2. ZEJULA [Suspect]
     Active Substance: NIRAPARIB
     Dosage: 200 MG, QD
     Dates: start: 20211206
  3. ZEJULA [Suspect]
     Active Substance: NIRAPARIB
     Dosage: 200 MG, QD
     Dates: start: 20211227
  4. ZEJULA [Suspect]
     Active Substance: NIRAPARIB
     Dosage: UNK (REDUCED DOSE)
     Dates: start: 20220315
  5. ZEJULA [Suspect]
     Active Substance: NIRAPARIB
     Dosage: 200 MG, QD
  6. ZEJULA [Suspect]
     Active Substance: NIRAPARIB
     Indication: Ovarian cancer
     Dosage: 200 MG, QD
  7. ZEJULA [Suspect]
     Active Substance: NIRAPARIB
     Dosage: 200 MG, QD
     Route: 048
  8. ZEJULA [Suspect]
     Active Substance: NIRAPARIB
     Dosage: 200 MG, BID
  9. ZEJULA [Suspect]
     Active Substance: NIRAPARIB
     Dosage: 200 MG, QD

REACTIONS (14)
  - Cataract [Unknown]
  - Intracranial aneurysm [Recovering/Resolving]
  - Skin neoplasm excision [Not Recovered/Not Resolved]
  - Dental care [Unknown]
  - Rash [Recovering/Resolving]
  - White blood cell count decreased [Unknown]
  - Headache [Not Recovered/Not Resolved]
  - Pain [Recovering/Resolving]
  - Back pain [Unknown]
  - Vertigo [Unknown]
  - Alopecia [Unknown]
  - Skin lesion [Unknown]
  - Off label use [Unknown]
  - Product dose confusion [Unknown]

NARRATIVE: CASE EVENT DATE: 20211206
